FAERS Safety Report 9415435 (Version 1)
Quarter: 2013Q3

REPORT INFORMATION
  Report Type: Spontaneous
  Country: GB (occurrence: GB)
  Receive Date: 20130723
  Receipt Date: 20130723
  Transmission Date: 20140515
  Serious: Yes (Hospitalization)
  Sender: FDA-Public Use
  Company Number: GB-WATSON-2013-12588

PATIENT
  Age: 74 Year
  Sex: 0

DRUGS (3)
  1. FLUCLOXACILLIN [Suspect]
     Indication: PRODUCT USED FOR UNKNOWN INDICATION
     Dosage: 500 MG/KG, QID
     Route: 048
     Dates: start: 20110525, end: 20110527
  2. METRONIDAZOLE (UNKNOWN) [Suspect]
     Indication: ASPIRATION
     Dosage: 500 MG, TID
     Route: 041
     Dates: start: 20110525, end: 20110527
  3. CEFTRIAXONE (UNKNOWN) [Suspect]
     Indication: MENINGITIS MENINGOCOCCAL
     Dosage: 2 G, BID
     Route: 041
     Dates: start: 20110525, end: 20110603

REACTIONS (2)
  - Diarrhoea [Unknown]
  - Clostridium difficile infection [Unknown]
